FAERS Safety Report 19366939 (Version 1)
Quarter: 2021Q2

REPORT INFORMATION
  Report Type: Spontaneous
  Country: DE (occurrence: DE)
  Receive Date: 20210603
  Receipt Date: 20210603
  Transmission Date: 20210717
  Serious: Yes (Other)
  Sender: FDA-Public Use
  Company Number: DE-ASTRAZENECA-2021A440527

PATIENT
  Age: 57 Year
  Sex: Male

DRUGS (7)
  1. LEQVIO [Suspect]
     Active Substance: INCLISIRAN
     Indication: ARTERIOSCLEROSIS
     Dosage: UNKNOWN
     Route: 065
     Dates: start: 20210422
  2. ROSUVASTATIN. [Suspect]
     Active Substance: ROSUVASTATIN
     Indication: PRODUCT USED FOR UNKNOWN INDICATION
     Dosage: UNKNOWN
     Route: 065
  3. ATORVASTATIN [Suspect]
     Active Substance: ATORVASTATIN
     Indication: PRODUCT USED FOR UNKNOWN INDICATION
     Dosage: UNKNOWN
     Route: 065
  4. LEQVIO [Suspect]
     Active Substance: INCLISIRAN
     Indication: ARTERIOSCLEROSIS
     Dosage: 300 MG300.0MG UNKNOWN
     Route: 065
     Dates: start: 20210218
  5. SIMVASTATIN. [Suspect]
     Active Substance: SIMVASTATIN
     Indication: PRODUCT USED FOR UNKNOWN INDICATION
     Dosage: UNKNOWN
     Route: 065
  6. LEQVIO [Suspect]
     Active Substance: INCLISIRAN
     Indication: HYPERCHOLESTEROLAEMIA
     Dosage: UNKNOWN
     Route: 065
     Dates: start: 20210422
  7. LEQVIO [Suspect]
     Active Substance: INCLISIRAN
     Indication: HYPERCHOLESTEROLAEMIA
     Dosage: 300 MG300.0MG UNKNOWN
     Route: 065
     Dates: start: 20210218

REACTIONS (4)
  - Myopathy [Not Recovered/Not Resolved]
  - Myalgia [Unknown]
  - Hypertriglyceridaemia [Unknown]
  - Therapeutic product effect incomplete [Not Recovered/Not Resolved]

NARRATIVE: CASE EVENT DATE: 20210414
